FAERS Safety Report 4323131-3 (Version None)
Quarter: 2004Q1

REPORT INFORMATION
  Report Type: 
  Country: None (occurrence: None)
  Receive Date: 20040324
  Receipt Date: 20040324
  Transmission Date: 20041129
  Serious: No
  Sender: FDA-Public Use
  Company Number: None

PATIENT
  Age: 53 Year
  Sex: Female
  Weight: 68.0396 kg

DRUGS (2)
  1. PAXIL CR [Suspect]
     Indication: ANXIETY
  2. PAXIL CR [Suspect]
     Indication: DISCOMFORT

REACTIONS (21)
  - ALOPECIA [None]
  - AMNESIA [None]
  - DIARRHOEA [None]
  - EAR PAIN [None]
  - ECONOMIC PROBLEM [None]
  - EYE DISORDER [None]
  - GASTRITIS [None]
  - GASTROINTESTINAL DISORDER [None]
  - GINGIVAL SWELLING [None]
  - HEADACHE [None]
  - IMPAIRED WORK ABILITY [None]
  - INFLAMMATION [None]
  - INFLUENZA LIKE ILLNESS [None]
  - LYMPHADENOPATHY [None]
  - MARKEDLY REDUCED DIETARY INTAKE [None]
  - NAUSEA [None]
  - NECK PAIN [None]
  - PAIN IN JAW [None]
  - PARANASAL SINUS HYPERSECRETION [None]
  - VOMITING [None]
  - WEIGHT DECREASED [None]
